FAERS Safety Report 7804863-9 (Version None)
Quarter: 2011Q4

REPORT INFORMATION
  Report Type: 
  Country: None (occurrence: None)
  Receive Date: 20111010
  Receipt Date: 20110929
  Transmission Date: 20120403
  Serious: Yes (Other)
  Sender: FDA-Public Use
  Company Number: US-PERRIGO-11US008291

PATIENT
  Sex: Female
  Weight: 81.633 kg

DRUGS (5)
  1. BUTRANS [Concomitant]
     Indication: PAIN
     Dosage: 5 MCG PER HR, EVERY 7 DAYS
     Route: 062
     Dates: start: 20110918
  2. DEXILANT [Concomitant]
     Indication: GASTROOESOPHAGEAL REFLUX DISEASE
     Dosage: 60 MG, QD
     Route: 048
     Dates: start: 20080101
  3. CELEBREX [Concomitant]
     Indication: PAIN
     Dosage: 20 MG, QD
     Route: 048
     Dates: start: 20110918
  4. TIZANIDINE HYDROCHLORIDE [Concomitant]
     Indication: MUSCLE SPASMS
     Dosage: 4 MG, 1-4 TABLETS, AS NEEDED AT BEDTIME
     Route: 048
     Dates: start: 20110918
  5. SALINE NASAL SPRAY 0.65% 312 [Suspect]
     Indication: NASAL CONGESTION
     Dosage: 2 SPRAYS, EACH NOSTRIL, AS NEEDED
     Route: 045
     Dates: start: 20110901, end: 20110929

REACTIONS (9)
  - NAUSEA [None]
  - ABDOMINAL PAIN [None]
  - EPISTAXIS [None]
  - PRURITUS [None]
  - EAR CONGESTION [None]
  - NASAL DISORDER [None]
  - HEADACHE [None]
  - VOMITING [None]
  - CONDITION AGGRAVATED [None]
